FAERS Safety Report 10332120 (Version 1)
Quarter: 2014Q3

REPORT INFORMATION
  Report Type: Spontaneous
  Country: US (occurrence: US)
  Receive Date: 20140722
  Receipt Date: 20140722
  Transmission Date: 20150326
  Serious: No
  Sender: FDA-Public Use
  Company Number: US-009507513-1407USA009176

PATIENT
  Sex: Female

DRUGS (1)
  1. OXYTROL FOR WOMEN [Suspect]
     Active Substance: OXYBUTYNIN
     Indication: PRODUCT USED FOR UNKNOWN INDICATION
     Dosage: UNK, UNKNOWN
     Route: 062
     Dates: start: 201405

REACTIONS (3)
  - Application site irritation [Recovering/Resolving]
  - Application site discomfort [Recovering/Resolving]
  - Application site rash [Recovering/Resolving]

NARRATIVE: CASE EVENT DATE: 2014
